FAERS Safety Report 13821235 (Version 4)
Quarter: 2017Q4

REPORT INFORMATION
  Report Type: Spontaneous
  Country: US (occurrence: US)
  Receive Date: 20170801
  Receipt Date: 20171027
  Transmission Date: 20180320
  Serious: Yes (Other)
  Sender: FDA-Public Use
  Company Number: US-PFIZER INC-2017332452

PATIENT
  Age: 43 Year
  Sex: Female

DRUGS (8)
  1. ESTRING [Suspect]
     Active Substance: ESTRADIOL
     Indication: HOT FLUSH
  2. ESTRING [Suspect]
     Active Substance: ESTRADIOL
     Indication: MENOPAUSE
  3. GABAPENTIN. [Concomitant]
     Active Substance: GABAPENTIN
     Dosage: UNK
     Dates: start: 201703
  4. ESTRING [Suspect]
     Active Substance: ESTRADIOL
     Indication: HORMONE REPLACEMENT THERAPY
     Dosage: 2 MG, EVERY 3 MONTHS
     Route: 067
     Dates: start: 20170720, end: 20170729
  5. CYCLOBENZAPRINE. [Concomitant]
     Active Substance: CYCLOBENZAPRINE
     Dosage: UNK
     Dates: start: 201703
  6. TRAZODONE [Concomitant]
     Active Substance: TRAZODONE HYDROCHLORIDE
     Dosage: UNK
     Dates: start: 201703
  7. ESTRING [Suspect]
     Active Substance: ESTRADIOL
     Indication: ATROPHIC VULVOVAGINITIS
  8. TRAMADOL. [Concomitant]
     Active Substance: TRAMADOL
     Dosage: UNK
     Dates: start: 201703

REACTIONS (6)
  - Vulvovaginal dryness [Recovered/Resolved]
  - Vulvovaginal pain [Recovered/Resolved]
  - Dyspareunia [Recovered/Resolved]
  - Vulvovaginal discomfort [Recovered/Resolved]
  - Vaginal haemorrhage [Unknown]
  - Mood swings [Recovered/Resolved]

NARRATIVE: CASE EVENT DATE: 2017
